FAERS Safety Report 4865651-9 (Version None)
Quarter: 2005Q4

REPORT INFORMATION
  Report Type: 
  Country: None (occurrence: None)
  Receive Date: 20051223
  Receipt Date: 20051213
  Transmission Date: 20060501
  Serious: Yes (Life-Threatening)
  Sender: FDA-Public Use
  Company Number: JP-ABBOTT-05P-087-0319510-00

PATIENT
  Age: 19 Year
  Sex: Female

DRUGS (4)
  1. SEVOFLURANE [Suspect]
     Indication: ANAESTHESIA
     Route: 065
  2. PROPOFOL [Suspect]
     Indication: ANAESTHESIA
     Route: 065
  3. VECURONIUM BROMIDE [Suspect]
     Indication: ANAESTHESIA
     Route: 065
  4. FENTANYL [Concomitant]
     Indication: DRUG USE FOR UNKNOWN INDICATION

REACTIONS (1)
  - RESPIRATORY FAILURE [None]
